FAERS Safety Report 9637492 (Version 2)
Quarter: 2013Q4

REPORT INFORMATION
  Report Type: Spontaneous
  Country: FR (occurrence: FR)
  Receive Date: 20131022
  Receipt Date: 20131106
  Transmission Date: 20140711
  Serious: Yes (Hospitalization, Other)
  Sender: FDA-Public Use
  Company Number: FR-JNJFOC-20131011047

PATIENT
  Age: 44 Year
  Sex: Male

DRUGS (1)
  1. XARELTO [Suspect]
     Indication: DEEP VEIN THROMBOSIS
     Route: 048
     Dates: start: 20130924, end: 20130930

REACTIONS (2)
  - Dizziness [Recovered/Resolved]
  - Burning sensation [Recovered/Resolved]
